FAERS Safety Report 25612048 (Version 1)
Quarter: 2025Q3

REPORT INFORMATION
  Report Type: Report from Study
  Country: CN (occurrence: CN)
  Receive Date: 20250728
  Receipt Date: 20250728
  Transmission Date: 20251020
  Serious: Yes (Death, Other)
  Sender: BEIGENE
  Company Number: CN-BEIGENE-BGN-2025-012079

PATIENT
  Age: 64 Year

DRUGS (2)
  1. TISLELIZUMAB [Suspect]
     Active Substance: TISLELIZUMAB
     Indication: Hepatocellular carcinoma
  2. TISLELIZUMAB [Suspect]
     Active Substance: TISLELIZUMAB

REACTIONS (5)
  - Immune-mediated hepatic disorder [Fatal]
  - Pancreatitis [Unknown]
  - Myocarditis [Unknown]
  - Dermatitis [Unknown]
  - Enteritis [Unknown]
